FAERS Safety Report 7372537-7 (Version None)
Quarter: 2011Q1

REPORT INFORMATION
  Report Type: 
  Country: None (occurrence: None)
  Receive Date: 20110315
  Receipt Date: 20110223
  Transmission Date: 20110831
  Serious: Yes (Life-Threatening)
  Sender: FDA-Public Use
  Company Number: 2011NA000014

PATIENT
  Age: 74 Year
  Sex: Female

DRUGS (2)
  1. DICLOFENAC (DICLOFENAC) [Suspect]
     Indication: PRODUCT USED FOR UNKNOWN INDICATION
     Dosage: 1X;PO
     Route: 048
  2. DICLOFENAC (DICLOFENAC) [Suspect]
     Dosage: 1X;IV
     Route: 042

REACTIONS (8)
  - UPPER RESPIRATORY TRACT INFECTION [None]
  - CORONARY ARTERY DISEASE [None]
  - ELECTROCARDIOGRAM ST SEGMENT ELEVATION [None]
  - ATRIOVENTRICULAR BLOCK COMPLETE [None]
  - CHEST PAIN [None]
  - BLOOD IMMUNOGLOBULIN E INCREASED [None]
  - DRUG HYPERSENSITIVITY [None]
  - CORONARY ARTERIAL STENT INSERTION [None]
